FAERS Safety Report 16589567 (Version 1)
Quarter: 2019Q3

REPORT INFORMATION
  Report Type: Spontaneous
  Country: CN (occurrence: CN)
  Receive Date: 20190718
  Receipt Date: 20190718
  Transmission Date: 20191004
  Serious: Yes (Other)
  Sender: FDA-Public Use
  Company Number: CN-ROCHE-2358181

PATIENT
  Age: 30 Year
  Sex: Female

DRUGS (3)
  1. ACTEMRA [Suspect]
     Active Substance: TOCILIZUMAB
     Dosage: 5 VIALS
     Route: 041
     Dates: start: 20190717
  2. HORMONES [Concomitant]
     Active Substance: UNSPECIFIED INGREDIENT
     Route: 065
     Dates: start: 201906
  3. ACTEMRA [Suspect]
     Active Substance: TOCILIZUMAB
     Indication: STILL^S DISEASE
     Route: 041
     Dates: start: 201906

REACTIONS (3)
  - Hypersensitivity [Recovering/Resolving]
  - Muscle twitching [Recovering/Resolving]
  - Lividity [Recovering/Resolving]

NARRATIVE: CASE EVENT DATE: 20190717
